FAERS Safety Report 10015862 (Version 1)
Quarter: 2014Q1

REPORT INFORMATION
  Report Type: Spontaneous
  Country: JP (occurrence: JP)
  Receive Date: 20140317
  Receipt Date: 20140317
  Transmission Date: 20141002
  Serious: Yes (Other)
  Sender: FDA-Public Use
  Company Number: JP-JNJFOC-20140309429

PATIENT
  Age: 70 Year
  Sex: Male

DRUGS (21)
  1. FINIBAX [Suspect]
     Indication: PNEUMONIA
     Dosage: 1 G THREE TIMES DAILY
     Route: 041
     Dates: start: 20140224, end: 20140304
  2. MEROPENEM HYDRATE [Suspect]
     Indication: PNEUMONIA
     Route: 065
     Dates: start: 20140222, end: 20140223
  3. ELASPOL [Suspect]
     Indication: PRODUCT USED FOR UNKNOWN INDICATION
     Route: 065
     Dates: start: 20140222, end: 20140226
  4. RECOMODULIN [Suspect]
     Indication: PRODUCT USED FOR UNKNOWN INDICATION
     Dosage: UNITS KIU
     Route: 065
     Dates: start: 20140223, end: 20140227
  5. SOL-MELCORT [Suspect]
     Indication: PRODUCT USED FOR UNKNOWN INDICATION
     Route: 065
     Dates: start: 20140222, end: 20140224
  6. HYDROCORTISONE SODIUM PHOSPHATE [Suspect]
     Indication: PRODUCT USED FOR UNKNOWN INDICATION
     Route: 048
     Dates: start: 20140225, end: 20140228
  7. VENILON [Suspect]
     Indication: PNEUMONIA
     Route: 065
     Dates: start: 20140222, end: 20140224
  8. GRACEVIT [Suspect]
     Indication: PNEUMONIA
     Route: 048
     Dates: start: 20140305, end: 20140311
  9. CRAVIT [Suspect]
     Indication: PNEUMONIA
     Route: 065
     Dates: start: 20140224, end: 20140304
  10. CRAVIT [Suspect]
     Indication: PNEUMONIA
     Route: 065
     Dates: start: 20140222, end: 20140223
  11. INOVAN [Concomitant]
     Route: 065
     Dates: start: 20140222, end: 20140225
  12. TAKEPRON [Concomitant]
     Indication: PROPHYLAXIS
     Route: 048
     Dates: start: 20140228
  13. TAKEPRON [Concomitant]
     Indication: PROPHYLAXIS
     Route: 048
     Dates: start: 20140222, end: 20140227
  14. NOVOLIN R [Concomitant]
     Indication: BLOOD GLUCOSE INCREASED
     Route: 065
     Dates: start: 20140222, end: 20140226
  15. ATARAX-P [Concomitant]
     Indication: INSOMNIA
     Route: 065
     Dates: start: 20140224, end: 20140227
  16. THEOPHYLLINE [Concomitant]
     Route: 048
  17. DIAMOX [Concomitant]
     Route: 048
  18. MIYA BM [Concomitant]
     Indication: PROPHYLAXIS
     Route: 048
     Dates: start: 20140225
  19. MUCODYNE [Concomitant]
     Route: 048
     Dates: start: 20140225, end: 20140306
  20. HOKUNALIN [Concomitant]
     Route: 065
     Dates: start: 20140225
  21. SPIRIVA [Concomitant]
     Route: 065

REACTIONS (8)
  - Blood urea increased [Recovered/Resolved]
  - Oral candidiasis [Recovered/Resolved]
  - Diarrhoea [Recovered/Resolved]
  - Platelet count decreased [Recovered/Resolved]
  - Blood sodium increased [Recovered/Resolved]
  - Blood glucose increased [Recovered/Resolved]
  - Gamma-glutamyltransferase increased [Recovered/Resolved]
  - Insomnia [Recovered/Resolved]
